FAERS Safety Report 5316061-1 (Version None)
Quarter: 2007Q2

REPORT INFORMATION
  Report Type: 
  Country: None (occurrence: None)
  Receive Date: 20070503
  Receipt Date: 20070424
  Transmission Date: 20071010
  Serious: Yes (Other)
  Sender: FDA-Public Use
  Company Number: US-ELI_LILLY_AND_COMPANY-US200701003690

PATIENT
  Age: 52 Year
  Sex: Female

DRUGS (6)
  1. BYETTA [Suspect]
     Indication: DIABETES MELLITUS NON-INSULIN-DEPENDENT
     Dosage: 10 UG, 2/D
     Route: 058
     Dates: start: 20060101
  2. BYETTA [Suspect]
     Dosage: 5 UG, 2/D
     Route: 058
     Dates: start: 20060601, end: 20060101
  3. BYETTA [Suspect]
     Dosage: 10 U, 2/D
  4. METFORMIN HCL [Concomitant]
  5. ACTOS [Concomitant]
  6. PRINIVIL [Concomitant]
     Dosage: 10 UNK, DAILY (1/D)

REACTIONS (3)
  - DYSPEPSIA [None]
  - SYNCOPE [None]
  - VOMITING [None]
